FAERS Safety Report 15645025 (Version 2)
Quarter: 2018Q4

REPORT INFORMATION
  Report Type: Spontaneous
  Country: US (occurrence: US)
  Receive Date: 20181121
  Receipt Date: 20181213
  Transmission Date: 20190205
  Serious: Yes (Hospitalization, Disabling)
  Sender: FDA-Public Use
  Company Number: US-OTSUKA-2017_011330

PATIENT
  Age: 48 Year
  Sex: Female
  Weight: 85.45 kg

DRUGS (18)
  1. ABILIFY [Suspect]
     Active Substance: ARIPIPRAZOLE
     Dosage: 15 MG, QD
     Route: 065
  2. TOPAMAX [Concomitant]
     Active Substance: TOPIRAMATE
     Dosage: 100 MG, QD
     Route: 065
  3. LISINOPRIL. [Concomitant]
     Active Substance: LISINOPRIL
     Indication: HYPERTENSION
     Dosage: 20 MG, QD
     Route: 065
  4. ABILIFY [Suspect]
     Active Substance: ARIPIPRAZOLE
     Indication: BIPOLAR DISORDER
     Dosage: 5 MG, QD
     Route: 065
     Dates: start: 20040505
  5. ZOCOR [Concomitant]
     Active Substance: SIMVASTATIN
     Indication: PRODUCT USED FOR UNKNOWN INDICATION
     Dosage: 40 MG, QD
     Route: 065
  6. ABILIFY [Suspect]
     Active Substance: ARIPIPRAZOLE
     Dosage: 10 MG, QD
     Route: 065
  7. INVEGA SUSTENNA [Concomitant]
     Active Substance: PALIPERIDONE PALMITATE
     Indication: PRODUCT USED FOR UNKNOWN INDICATION
     Dosage: 117 MG, QM
     Route: 030
  8. SAPHRIS [Concomitant]
     Active Substance: ASENAPINE MALEATE
     Indication: PRODUCT USED FOR UNKNOWN INDICATION
     Dosage: 10 MG, BID
     Route: 065
  9. SAPHRIS [Concomitant]
     Active Substance: ASENAPINE MALEATE
     Dosage: 10 MG, QD
     Route: 065
  10. KLONOPIN [Concomitant]
     Active Substance: CLONAZEPAM
     Indication: PRODUCT USED FOR UNKNOWN INDICATION
     Dosage: 1 MG, BID
     Route: 065
  11. TOPAMAX [Concomitant]
     Active Substance: TOPIRAMATE
     Indication: PRODUCT USED FOR UNKNOWN INDICATION
     Dosage: 50 MG, QD
     Route: 065
  12. ABILIFY [Suspect]
     Active Substance: ARIPIPRAZOLE
     Dosage: 30 MG, QD
     Route: 065
  13. ABILIFY [Suspect]
     Active Substance: ARIPIPRAZOLE
     Dosage: 25 MG, QD
     Route: 065
     Dates: end: 201405
  14. TRILEPTAL [Concomitant]
     Active Substance: OXCARBAZEPINE
     Indication: PRODUCT USED FOR UNKNOWN INDICATION
     Dosage: 300 MG, BID
     Route: 065
  15. ABILIFY [Suspect]
     Active Substance: ARIPIPRAZOLE
     Dosage: 20 MG, QD
     Route: 065
  16. PROZAC [Concomitant]
     Active Substance: FLUOXETINE HYDROCHLORIDE
     Indication: PRODUCT USED FOR UNKNOWN INDICATION
     Dosage: 40 MG, QD
     Route: 065
  17. VICODIN [Concomitant]
     Active Substance: ACETAMINOPHEN\HYDROCODONE BITARTRATE
     Indication: BACK PAIN
     Dosage: 750 MG, QD
     Route: 065
  18. TRAZODONE [Concomitant]
     Active Substance: TRAZODONE HYDROCHLORIDE
     Indication: PRODUCT USED FOR UNKNOWN INDICATION
     Dosage: 50 MG, QD
     Route: 065

REACTIONS (36)
  - Symptom recurrence [Unknown]
  - Emotional distress [Unknown]
  - Obsessive-compulsive disorder [Recovered/Resolved]
  - Restlessness [Unknown]
  - Pressure of speech [Unknown]
  - Hallucination [Unknown]
  - Tachyphrenia [Unknown]
  - Psychosexual disorder [Recovered/Resolved]
  - Somnolence [Unknown]
  - Hypersexuality [Unknown]
  - Decreased appetite [Unknown]
  - Treatment noncompliance [Unknown]
  - Loss of employment [Unknown]
  - Fatigue [Unknown]
  - Crime [Unknown]
  - Hypnopompic hallucination [Unknown]
  - Delusion [Unknown]
  - Sleep disorder [Unknown]
  - Gastrooesophageal reflux disease [Unknown]
  - Gambling disorder [Recovered/Resolved]
  - Depression [Unknown]
  - Product dose omission [Unknown]
  - Anxiety [Unknown]
  - Dependent personality disorder [Unknown]
  - Feeling abnormal [Unknown]
  - Paranoia [Unknown]
  - Blood cholesterol increased [Unknown]
  - Dysgeusia [Unknown]
  - Impulsive behaviour [Unknown]
  - Hypertension [Unknown]
  - Chest pain [Recovered/Resolved]
  - Violence-related symptom [Unknown]
  - Asthenia [Unknown]
  - Weight increased [Unknown]
  - Akathisia [Unknown]
  - Economic problem [Unknown]

NARRATIVE: CASE EVENT DATE: 20080421
